FAERS Safety Report 25174675 (Version 1)
Quarter: 2025Q2

REPORT INFORMATION
  Report Type: Spontaneous
  Country: US (occurrence: US)
  Receive Date: 20250408
  Receipt Date: 20250408
  Transmission Date: 20250716
  Serious: Yes (Other)
  Sender: ROCHE
  Company Number: US-BoehringerIngelheim-2025-BI-018912

PATIENT
  Age: 69 Year
  Sex: Male

DRUGS (1)
  1. METALYSE [Suspect]
     Active Substance: TENECTEPLASE
     Indication: Pulmonary embolism
     Route: 065

REACTIONS (1)
  - Haemarthrosis [Recovering/Resolving]
